FAERS Safety Report 17458483 (Version 1)
Quarter: 2020Q1

REPORT INFORMATION
  Report Type: Spontaneous
  Country: US (occurrence: US)
  Receive Date: 20200225
  Receipt Date: 20200225
  Transmission Date: 20200409
  Serious: Yes (Hospitalization, Other)
  Sender: FDA-Public Use
  Company Number: US-ALEMBIC PHARMACUETICALS LIMITED-2020SCAL000075

PATIENT

DRUGS (3)
  1. QUETIAPINE FUMARATE. [Suspect]
     Active Substance: QUETIAPINE FUMARATE
     Indication: BIPOLAR DISORDER
     Dosage: HIGH DOSE
  2. QUETIAPINE FUMARATE. [Interacting]
     Active Substance: QUETIAPINE FUMARATE
     Indication: DEPRESSION
  3. GARCINIA CAMBOGIA [CALCIUM;CHROMIUM PICOLINATE;GARCINIA GUMMI-GUTTA] [Interacting]
     Active Substance: DIETARY SUPPLEMENT
     Indication: WEIGHT DECREASED
     Dosage: UNK

REACTIONS (10)
  - Abdominal distension [Recovering/Resolving]
  - Abdominal pain [Recovering/Resolving]
  - Therapeutic product effect increased [Unknown]
  - Hepatic steatosis [Recovering/Resolving]
  - Abdominal tenderness [Recovering/Resolving]
  - Hyperbilirubinaemia [Recovering/Resolving]
  - Coagulopathy [Recovering/Resolving]
  - Transaminases increased [Recovering/Resolving]
  - Drug interaction [Unknown]
  - Drug-induced liver injury [Recovering/Resolving]
